FAERS Safety Report 7717796-3 (Version None)
Quarter: 2011Q3

REPORT INFORMATION
  Report Type: 
  Country: None (occurrence: None)
  Receive Date: 20110830
  Receipt Date: 20110818
  Transmission Date: 20111222
  Serious: Yes (Hospitalization)
  Sender: FDA-Public Use
  Company Number: MX-SANOFI-AVENTIS-2011SA044099

PATIENT
  Age: 84 Year
  Sex: Male
  Weight: 83 kg

DRUGS (3)
  1. DRONEDARONE HCL [Suspect]
     Indication: ATRIAL FIBRILLATION
     Route: 048
     Dates: start: 20110401
  2. CLONAZEPAM [Concomitant]
  3. SINTROM [Concomitant]

REACTIONS (1)
  - CARDIAC FAILURE [None]
